FAERS Safety Report 25948295 (Version 1)
Quarter: 2025Q4

REPORT INFORMATION
  Report Type: Spontaneous
  Country: US (occurrence: US)
  Receive Date: 20251022
  Receipt Date: 20251022
  Transmission Date: 20260118
  Serious: No
  Sender: PFIZER
  Company Number: US-PFIZER INC-PV202300024921

PATIENT
  Age: 84 Year
  Sex: Female
  Weight: 53.98 kg

DRUGS (3)
  1. IBRANCE [Suspect]
     Active Substance: PALBOCICLIB
     Indication: Neoplasm malignant
     Dosage: TAKE FOR 14 DAYS THEN OFF 7
     Route: 048
  2. IBRANCE [Suspect]
     Active Substance: PALBOCICLIB
     Dosage: ONE 75MG TABLET A DAY FOR 21 DAYS AND THEN OFF FOR 7 DAYS
  3. IBRANCE [Suspect]
     Active Substance: PALBOCICLIB
     Dosage: TAKE FOR 14 DAYS THEN OFF 14 DAYS
     Route: 048

REACTIONS (2)
  - Blood test abnormal [Unknown]
  - Off label use [Unknown]
